FAERS Safety Report 21137558 (Version 6)
Quarter: 2024Q4

REPORT INFORMATION
  Report Type: Spontaneous
  Country: ZA (occurrence: ZA)
  Receive Date: 20220727
  Receipt Date: 20241122
  Transmission Date: 20250114
  Serious: Yes (Hospitalization, Other)
  Sender: PFIZER
  Company Number: ZA-PFIZER INC-PV202200005738

PATIENT
  Age: 51 Year
  Sex: Female
  Weight: 74 kg

DRUGS (4)
  1. XELJANZ [Suspect]
     Active Substance: TOFACITINIB CITRATE
     Indication: Colitis ulcerative
     Dosage: 10 G, 2X/DAY
     Dates: start: 20220116, end: 20220705
  2. XELJANZ [Suspect]
     Active Substance: TOFACITINIB CITRATE
     Dosage: 5 MG, 2X/DAY
     Dates: start: 20220705
  3. XELJANZ [Suspect]
     Active Substance: TOFACITINIB CITRATE
     Dosage: 10 MG, 2X/DAY
     Dates: start: 2022
  4. XELJANZ [Suspect]
     Active Substance: TOFACITINIB CITRATE
     Dosage: 5 MG
     Dates: start: 202402

REACTIONS (19)
  - Frequent bowel movements [Recovered/Resolved]
  - Abdominal pain [Unknown]
  - Faecal calprotectin increased [Not Recovered/Not Resolved]
  - C-reactive protein increased [Recovered/Resolved]
  - Uveitis [Not Recovered/Not Resolved]
  - Proctitis ulcerative [Unknown]
  - Cataract [Recovering/Resolving]
  - Eye inflammation [Recovering/Resolving]
  - Colitis [Recovered/Resolved]
  - Macular oedema [Unknown]
  - Off label use [Unknown]
  - Back pain [Unknown]
  - Mucolipidosis [Unknown]
  - Pseudopolyp [Unknown]
  - Lymphoid hyperplasia of intestine [Unknown]
  - Red blood cell sedimentation rate increased [Unknown]
  - Visual impairment [Unknown]
  - Blood alkaline phosphatase increased [Unknown]
  - Condition aggravated [Unknown]

NARRATIVE: CASE EVENT DATE: 20220715
